FAERS Safety Report 6874724-0 (Version None)
Quarter: 2010Q3

REPORT INFORMATION
  Report Type: 
  Country: None (occurrence: None)
  Receive Date: 20100723
  Receipt Date: 20100714
  Transmission Date: 20110219
  Serious: Yes (Hospitalization)
  Sender: FDA-Public Use
  Company Number: 644197

PATIENT
  Age: 22 Year
  Sex: Female

DRUGS (4)
  1. ERYTHROMYCIN [Suspect]
     Indication: ASTHMA
  2. ERYTHROMYCIN [Suspect]
     Indication: CONDITION AGGRAVATED
  3. PREDNISOLONE [Suspect]
     Indication: ASTHMA
  4. PREDNISOLONE [Suspect]
     Indication: CONDITION AGGRAVATED

REACTIONS (5)
  - CAESAREAN SECTION [None]
  - DRUG EXPOSURE DURING PREGNANCY [None]
  - HYPERTENSION [None]
  - KETOACIDOSIS [None]
  - PREMATURE LABOUR [None]
